FAERS Safety Report 4296144-8 (Version None)
Quarter: 2004Q1

REPORT INFORMATION
  Report Type: 
  Country: None (occurrence: None)
  Receive Date: 20040217
  Receipt Date: 20030827
  Transmission Date: 20041129
  Serious: No
  Sender: FDA-Public Use
  Company Number: US-GLAXOSMITHKLINE-A0423741A

PATIENT
  Sex: Female

DRUGS (3)
  1. LAMICTAL [Suspect]
     Indication: BIPOLAR DISORDER
     Dosage: 100MG VARIABLE DOSE
     Route: 048
     Dates: start: 20030707
  2. XANAX [Concomitant]
     Dosage: .25MG AS REQUIRED
  3. AMBIEN [Concomitant]

REACTIONS (2)
  - CONTUSION [None]
  - JOINT SWELLING [None]
